FAERS Safety Report 6106855-7 (Version None)
Quarter: 2009Q1

REPORT INFORMATION
  Report Type: 
  Country: None (occurrence: None)
  Receive Date: 20090303
  Receipt Date: 20090223
  Transmission Date: 20090719
  Serious: Yes (Hospitalization)
  Sender: FDA-Public Use
  Company Number: 2009AL001070

PATIENT
  Age: 33 Year
  Sex: Female

DRUGS (6)
  1. PHENOBARBITAL TAB [Suspect]
     Indication: CONVULSION
  2. PHENYTOIN [Concomitant]
  3. CLOBAZAM [Concomitant]
  4. VALPROATE SODIUM [Concomitant]
  5. HALOPERIDOL [Concomitant]
  6. MIDAZOLAM HCL [Concomitant]

REACTIONS (2)
  - HEPATIC FAILURE [None]
  - LIVER TRANSPLANT [None]
